FAERS Safety Report 8474098-8 (Version None)
Quarter: 2012Q2

REPORT INFORMATION
  Report Type: 
  Country: None (occurrence: None)
  Receive Date: 20120628
  Receipt Date: 20110706
  Transmission Date: 20120825
  Serious: Yes (Other)
  Sender: FDA-Public Use
  Company Number: US-MYLANLABS-2011S1009465

PATIENT
  Age: 81 Year
  Sex: Female

DRUGS (10)
  1. FLORINEF [Concomitant]
  2. ARICEPT [Concomitant]
  3. SINEMET [Concomitant]
  4. CLOZAPINE [Suspect]
     Route: 048
  5. TRAZODONE HCL [Concomitant]
  6. CLOZAPINE [Suspect]
     Route: 048
     Dates: start: 20110314, end: 20110502
  7. LEVOTHYROXINE [Concomitant]
  8. ASPIRIN [Concomitant]
  9. COLACE [Concomitant]
  10. VESICARE [Concomitant]

REACTIONS (1)
  - GRANULOCYTOPENIA [None]
